FAERS Safety Report 7608939-0 (Version None)
Quarter: 2011Q3

REPORT INFORMATION
  Report Type: 
  Country: None (occurrence: None)
  Receive Date: 20110714
  Receipt Date: 20110707
  Transmission Date: 20111222
  Serious: Yes (Other)
  Sender: FDA-Public Use
  Company Number: US-GLAXOSMITHKLINE-A0934865A

PATIENT
  Age: 86 Year
  Sex: Male

DRUGS (21)
  1. PROMACTA [Suspect]
     Indication: IDIOPATHIC THROMBOCYTOPENIC PURPURA
     Dosage: 75MG PER DAY
     Dates: start: 20110203, end: 20110523
  2. VIDAZA [Concomitant]
     Dates: start: 20110418
  3. ALLOPURINOL [Concomitant]
     Dosage: 150MG PER DAY
  4. ATIVAN [Concomitant]
     Indication: ANXIETY
     Dosage: .5MG AS REQUIRED
     Route: 048
  5. BUMETANIDE [Concomitant]
     Dosage: 1.5MG PER DAY
  6. PROVENTIL [Concomitant]
     Dosage: 90MCG PER DAY
     Route: 055
  7. MAG TAB [Concomitant]
     Dosage: 64MG TWICE PER DAY
     Route: 048
  8. MULTI-VITAMIN [Concomitant]
     Dosage: 1TAB PER DAY
     Route: 048
  9. PRILOSEC [Concomitant]
     Dosage: 40MG PER DAY
     Route: 048
  10. PREDNISONE [Concomitant]
     Dosage: 15MG PER DAY
  11. PROCRIT [Concomitant]
     Dates: start: 20110302
  12. POTASSIUM CHLORIDE [Concomitant]
     Dosage: 20MEQ TWICE PER DAY
     Route: 048
  13. SPIRIVA [Concomitant]
     Dosage: 10MCG PER DAY
     Route: 055
  14. ZAROXOLYN [Concomitant]
     Dosage: 2.5MG TWO TIMES PER WEEK
     Route: 048
  15. CORTICOSTEROIDS [Concomitant]
     Indication: IDIOPATHIC THROMBOCYTOPENIC PURPURA
     Dates: start: 20091101
  16. FORADIL [Concomitant]
     Dosage: 2PUFF TWICE PER DAY
     Route: 055
  17. SIMVASTATIN [Concomitant]
     Dosage: 20MG AT NIGHT
     Route: 048
  18. ROMIPLOSTIM [Concomitant]
     Indication: IDIOPATHIC THROMBOCYTOPENIC PURPURA
  19. AMBIEN [Concomitant]
     Indication: SLEEP DISORDER
     Dosage: 8MG AS REQUIRED
     Route: 048
  20. CALTRATE 600 + D [Concomitant]
     Dosage: 1TAB TWICE PER DAY
     Route: 048
  21. VICODIN [Concomitant]
     Indication: PAIN
     Route: 048

REACTIONS (4)
  - DRUG INEFFECTIVE [None]
  - EPISTAXIS [None]
  - IDIOPATHIC THROMBOCYTOPENIC PURPURA [None]
  - HAEMOPTYSIS [None]
